FAERS Safety Report 24054342 (Version 2)
Quarter: 2024Q3

REPORT INFORMATION
  Report Type: Spontaneous
  Country: FR (occurrence: FR)
  Receive Date: 20240705
  Receipt Date: 20240710
  Transmission Date: 20241016
  Serious: Yes (Death, Life-Threatening, Hospitalization)
  Sender: ACCORD
  Company Number: FR-MLMSERVICE-20240618-PI101133-00065-1

PATIENT
  Age: 76 Year
  Sex: Male

DRUGS (2)
  1. BICALUTAMIDE [Suspect]
     Active Substance: BICALUTAMIDE
     Indication: Prostate cancer
     Dates: start: 2021, end: 2021
  2. TRIPTORELIN ACETATE [Suspect]
     Active Substance: TRIPTORELIN ACETATE
     Indication: Prostate cancer
     Dates: start: 2021

REACTIONS (4)
  - Cotard^s syndrome [Unknown]
  - Suicide attempt [Unknown]
  - Major depression [Unknown]
  - Musculoskeletal disorder [Fatal]
